FAERS Safety Report 20578152 (Version 1)
Quarter: 2022Q1

REPORT INFORMATION
  Report Type: Spontaneous
  Country: US (occurrence: None)
  Receive Date: 20220310
  Receipt Date: 20220310
  Transmission Date: 20220423
  Serious: Yes (Hospitalization)
  Sender: FDA-Public Use
  Company Number: None

PATIENT
  Age: 71 Year
  Sex: Male
  Weight: 85.28 kg

DRUGS (2)
  1. GEMCITABINE HYDROCHLORIDE [Suspect]
     Active Substance: GEMCITABINE HYDROCHLORIDE
     Dates: start: 20210510, end: 20211115
  2. CAPECITABINE [Suspect]
     Active Substance: CAPECITABINE
     Dates: start: 20210510, end: 20211119

REACTIONS (3)
  - Thrombotic microangiopathy [None]
  - Hypertension [None]
  - Haemoglobin decreased [None]

NARRATIVE: CASE EVENT DATE: 20211125
